FAERS Safety Report 8774264 (Version 1)
Quarter: 2012Q4

REPORT INFORMATION
  Report Type: 
  Country: US (occurrence: US)
  Receive Date: 20120907
  Receipt Date: 20120907
  Transmission Date: 20130627
  Serious: No
  Sender: FDA-Public Use
  Company Number: US-009507513-1208USA000173

PATIENT

DRUGS (1)
  1. GANIRELIX ACETATE INJECTION [Suspect]
     Dosage: UNK
     Route: 058
     Dates: start: 20120530

REACTIONS (2)
  - Incorrect storage of drug [Unknown]
  - No adverse event [Unknown]
